FAERS Safety Report 4796616-3 (Version None)
Quarter: 2005Q4

REPORT INFORMATION
  Report Type: 
  Country: None (occurrence: None)
  Receive Date: 20051013
  Receipt Date: 20051003
  Transmission Date: 20060501
  Serious: Yes (Hospitalization)
  Sender: FDA-Public Use
  Company Number: FR-BRISTOL-MYERS SQUIBB COMPANY-13133525

PATIENT
  Age: 45 Year
  Sex: Female

DRUGS (8)
  1. AVAPRO [Suspect]
     Route: 048
     Dates: start: 20020701
  2. HYPERIUM [Suspect]
     Dates: start: 20050115
  3. FUROSEMIDE [Suspect]
     Indication: HYPERTENSION
     Dates: start: 20050215
  4. GLUCOR [Suspect]
     Indication: DIABETES MELLITUS NON-INSULIN-DEPENDENT
     Dates: start: 20050115
  5. LIPANTHYL [Suspect]
     Indication: DYSLIPIDAEMIA
     Dates: start: 20020701
  6. ISOPTIN [Suspect]
     Indication: ARRHYTHMIA
     Dates: start: 20041015
  7. GLUCOPHAGE [Concomitant]
  8. NOVONORM [Concomitant]

REACTIONS (3)
  - ARTHRALGIA [None]
  - LEUKOCYTOCLASTIC VASCULITIS [None]
  - VASCULAR PURPURA [None]
